FAERS Safety Report 9989249 (Version 1)
Quarter: 2014Q1

REPORT INFORMATION
  Report Type: Spontaneous
  Country: US (occurrence: US)
  Receive Date: 20140310
  Receipt Date: 20140310
  Transmission Date: 20141002
  Serious: Yes (Hospitalization)
  Sender: FDA-Public Use
  Company Number: US-ROXANE LABORATORIES, INC.-2014-RO-00349RO

PATIENT
  Age: 31 Year
  Sex: Female

DRUGS (3)
  1. LOSARTAN POTASSIUM USP [Suspect]
     Indication: HYPERTENSION
     Route: 065
  2. NIFEDIPINE [Concomitant]
     Indication: HYPERTENSION
     Route: 065
  3. CLONIDINE [Concomitant]
     Indication: HYPERTENSION
     Route: 065

REACTIONS (1)
  - Small bowel angioedema [Recovered/Resolved]
